FAERS Safety Report 10431399 (Version 1)
Quarter: 2014Q3

REPORT INFORMATION
  Report Type: Report from Study
  Country: BR (occurrence: BR)
  Receive Date: 20140904
  Receipt Date: 20140904
  Transmission Date: 20150326
  Serious: Yes (Other)
  Sender: FDA-Public Use
  Company Number: BR-GLAXOSMITHKLINE-A1087557A

PATIENT
  Sex: Female
  Weight: 48 kg

DRUGS (2)
  1. SERETIDE [Suspect]
     Active Substance: FLUTICASONE FUROATE\SALMETEROL XINAFOATE
     Indication: BRONCHITIS
     Dosage: 2PUFF FOUR TIMES PER DAY
     Route: 048
  2. RIVOTRIL [Concomitant]
     Active Substance: CLONAZEPAM

REACTIONS (3)
  - Overdose [Not Recovered/Not Resolved]
  - Dementia Alzheimer^s type [Not Recovered/Not Resolved]
  - Drug ineffective [Not Recovered/Not Resolved]

NARRATIVE: CASE EVENT DATE: 2014
